FAERS Safety Report 6240599-6 (Version None)
Quarter: 2009Q2

REPORT INFORMATION
  Report Type: 
  Country: None (occurrence: None)
  Receive Date: 20090623
  Receipt Date: 20081024
  Transmission Date: 20091009
  Serious: No
  Sender: FDA-Public Use
  Company Number: US-ASTRAZENECA-2008UW23824

PATIENT
  Age: 49 Year
  Sex: Female
  Weight: 68 kg

DRUGS (1)
  1. PULMICORT FLEXHALER [Suspect]
     Indication: ASTHMA
     Dosage: 180 MCG 2 PUFFS AM
     Route: 055

REACTIONS (7)
  - AGITATION [None]
  - ANGER [None]
  - DEPRESSION [None]
  - DIZZINESS [None]
  - FEELING ABNORMAL [None]
  - MUSCULOSKELETAL STIFFNESS [None]
  - NECK PAIN [None]
